FAERS Safety Report 24563371 (Version 1)
Quarter: 2024Q4

REPORT INFORMATION
  Report Type: Spontaneous
  Country: ES (occurrence: ES)
  Receive Date: 20241030
  Receipt Date: 20241030
  Transmission Date: 20250114
  Serious: Yes (Hospitalization)
  Sender: SANDOZ
  Company Number: ES-ROCHE-10000109364

PATIENT
  Age: 53 Year
  Sex: Female
  Weight: 92.2 kg

DRUGS (3)
  1. CARBOPLATIN [Suspect]
     Active Substance: CARBOPLATIN
     Indication: Neoplasm malignant
     Dosage: ON 07-DEC-2022 RECEIVED MOST RECENT DOSE (660 MG) PRIOR TO AE/SAE.
     Route: 042
     Dates: start: 20221115, end: 20221207
  2. PEMETREXED [Suspect]
     Active Substance: PEMETREXED
     Indication: Neoplasm malignant
     Dosage: ON 07-DEC-2022 RECEIVED MOST RECENT DOSE (940 MG) PRIOR TO AE/SAE.
     Route: 042
     Dates: start: 20221115, end: 20221207
  3. PEMBROLIZUMAB [Suspect]
     Active Substance: PEMBROLIZUMAB
     Indication: Neoplasm malignant
     Dosage: ON 07-DEC-2022, RECEIVED MOST RECENT DOSE (200 MG) PRIOR TO AE/SAE.
     Route: 042
     Dates: start: 20221115, end: 20221207

REACTIONS (1)
  - Haematotoxicity [Recovered/Resolved]

NARRATIVE: CASE EVENT DATE: 20221215
